FAERS Safety Report 10602750 (Version 5)
Quarter: 2015Q3

REPORT INFORMATION
  Report Type: Spontaneous
  Country: US (occurrence: US)
  Receive Date: 20141124
  Receipt Date: 20150723
  Transmission Date: 20151125
  Serious: Yes (Disabling, Other)
  Sender: FDA-Public Use
  Company Number: US-009507513-1411USA010066

PATIENT
  Sex: Female

DRUGS (3)
  1. FOSAMAX [Suspect]
     Active Substance: ALENDRONATE SODIUM
     Indication: OSTEOPOROSIS
     Dosage: 70 MG, QW
     Route: 048
     Dates: end: 200907
  2. FOSAMAX [Suspect]
     Active Substance: ALENDRONATE SODIUM
     Indication: OSTEOPENIA
     Dosage: UNK
     Route: 048
     Dates: start: 1999, end: 20030807
  3. ALENDRONATE SODIUM. [Suspect]
     Active Substance: ALENDRONATE SODIUM
     Indication: OSTEOPOROSIS
     Dosage: 70 MG, QW
     Route: 048
     Dates: start: 20080211, end: 20090708

REACTIONS (53)
  - Deafness [Unknown]
  - Femur fracture [Recovering/Resolving]
  - Ureteric repair [Unknown]
  - Foot fracture [Unknown]
  - Hyperparathyroidism [Unknown]
  - Skin graft [Unknown]
  - Osteoarthritis [Unknown]
  - Foot fracture [Unknown]
  - Fracture nonunion [Unknown]
  - Foot fracture [Unknown]
  - Pain [Unknown]
  - Diarrhoea [Unknown]
  - Muscle spasms [Unknown]
  - Road traffic accident [Unknown]
  - Bursitis [Unknown]
  - Hyperlipidaemia [Unknown]
  - Sleep apnoea syndrome [Unknown]
  - Foot fracture [Unknown]
  - Fracture nonunion [Unknown]
  - Fracture delayed union [Unknown]
  - Nausea [Unknown]
  - Gastrooesophageal reflux disease [Unknown]
  - Radius fracture [Recovered/Resolved]
  - Cellulitis [Unknown]
  - Abscess limb [Recovering/Resolving]
  - Foot fracture [Unknown]
  - Femoral neck fracture [Recovering/Resolving]
  - Basal cell carcinoma [Unknown]
  - Jaw fracture [Unknown]
  - Wrist fracture [Recovering/Resolving]
  - Haemarthrosis [Recovered/Resolved]
  - Essential hypertension [Unknown]
  - Dyspnoea [Unknown]
  - Oedema [Unknown]
  - Tooth fracture [Unknown]
  - Adverse event [Unknown]
  - Anaemia [Unknown]
  - Foot fracture [Unknown]
  - Anxiety [Not Recovered/Not Resolved]
  - Foot fracture [Unknown]
  - Fibula fracture [Unknown]
  - Foot fracture [Unknown]
  - Foot fracture [Unknown]
  - Foot fracture [Unknown]
  - Osteomyelitis [Unknown]
  - Femur fracture [Recovering/Resolving]
  - Foot fracture [Unknown]
  - Back pain [Unknown]
  - Hypothyroidism [Unknown]
  - Cholelithiasis [Unknown]
  - Major depression [Not Recovered/Not Resolved]
  - Foot fracture [Unknown]
  - Vitamin D deficiency [Unknown]

NARRATIVE: CASE EVENT DATE: 200003
